FAERS Safety Report 12377077 (Version 1)
Quarter: 2016Q2

REPORT INFORMATION
  Report Type: Report from Study
  Country: US (occurrence: US)
  Receive Date: 20160517
  Receipt Date: 20160517
  Transmission Date: 20160815
  Serious: No
  Sender: FDA-Public Use
  Company Number: US-MALLINCKRODT-T201504377

PATIENT
  Age: 50 Year
  Sex: Female

DRUGS (6)
  1. REPOSITORY CORTICOTROPIN INJECTION [Suspect]
     Active Substance: CORTICOTROPIN
     Dosage: 80 UNITS TWICE WEEKLY
     Route: 058
  2. LORCET [Concomitant]
     Active Substance: ACETAMINOPHEN\HYDROCODONE BITARTRATE
  3. NAPROSYN [Concomitant]
     Active Substance: NAPROXEN
  4. TRAMADOL. [Concomitant]
     Active Substance: TRAMADOL
  5. VICODIN [Concomitant]
     Active Substance: ACETAMINOPHEN\HYDROCODONE BITARTRATE
  6. REPOSITORY CORTICOTROPIN INJECTION [Suspect]
     Active Substance: CORTICOTROPIN
     Indication: PROTEINURIA
     Dosage: 40 UNITS TWICE WEEKLY
     Route: 058

REACTIONS (5)
  - Joint injury [Unknown]
  - Oral pain [Not Recovered/Not Resolved]
  - Tooth infection [Not Recovered/Not Resolved]
  - Tooth abscess [Not Recovered/Not Resolved]
  - Nasopharyngitis [Unknown]

NARRATIVE: CASE EVENT DATE: 20150915
